FAERS Safety Report 11105527 (Version 5)
Quarter: 2016Q1

REPORT INFORMATION
  Report Type: Report from Study
  Country: US (occurrence: US)
  Receive Date: 20150512
  Receipt Date: 20160105
  Transmission Date: 20160525
  Serious: Yes (Other)
  Sender: FDA-Public Use
  Company Number: US-AMGEN-USASP2015044176

PATIENT
  Age: 54 Year
  Sex: Female

DRUGS (1)
  1. ENBREL [Suspect]
     Active Substance: ETANERCEPT
     Indication: RHEUMATOID ARTHRITIS
     Dosage: 50 MG, QWK
     Route: 065
     Dates: start: 20090209

REACTIONS (9)
  - Joint swelling [Not Recovered/Not Resolved]
  - Middle ear effusion [Not Recovered/Not Resolved]
  - Ear infection [Not Recovered/Not Resolved]
  - Ear discomfort [Not Recovered/Not Resolved]
  - Back pain [Recovering/Resolving]
  - Vertebral body replacement [Recovering/Resolving]
  - Tobacco user [Not Recovered/Not Resolved]
  - Osteoarthritis [Not Recovered/Not Resolved]
  - Arthritis [Not Recovered/Not Resolved]

NARRATIVE: CASE EVENT DATE: 201503
